FAERS Safety Report 10101459 (Version 1)
Quarter: 2014Q2

REPORT INFORMATION
  Report Type: Spontaneous
  Country: US (occurrence: None)
  Receive Date: 20140423
  Receipt Date: 20140423
  Transmission Date: 20141212
  Serious: No
  Sender: FDA-Public Use
  Company Number: None

PATIENT
  Age: 50 Year
  Sex: Male
  Weight: 79.38 kg

DRUGS (2)
  1. VICEREX [Suspect]
  2. TADALAFIL [Suspect]

REACTIONS (3)
  - Vision blurred [None]
  - Photosensitivity reaction [None]
  - Cyanopsia [None]
